FAERS Safety Report 13344249 (Version 2)
Quarter: 2020Q1

REPORT INFORMATION
  Report Type: Spontaneous
  Country: ES (occurrence: ES)
  Receive Date: 20170316
  Receipt Date: 20200304
  Transmission Date: 20200409
  Serious: Yes (Hospitalization, Other)
  Sender: FDA-Public Use
  Company Number: ES-BRISTOL-MYERS SQUIBB COMPANY-BMS-2017-020707

PATIENT
  Age: 62 Year
  Sex: Female
  Weight: 65 kg

DRUGS (1)
  1. OPDIVO [Suspect]
     Active Substance: NIVOLUMAB
     Indication: NON-SMALL CELL LUNG CANCER
     Dosage: 3 MILLIGRAM/KILOGRAM, Q2WK
     Route: 042
     Dates: start: 20151201

REACTIONS (8)
  - Hyperglycaemia [Recovering/Resolving]
  - Condition aggravated [Not Recovered/Not Resolved]
  - Hypothyroidism [Recovered/Resolved]
  - Diabetes mellitus [Not Recovered/Not Resolved]
  - Blood triglycerides increased [Not Recovered/Not Resolved]
  - Autoimmune hypothyroidism [Not Recovered/Not Resolved]
  - High density lipoprotein decreased [Recovered/Resolved]
  - Hypertriglyceridaemia [Recovered/Resolved]

NARRATIVE: CASE EVENT DATE: 20160111
